FAERS Safety Report 6441898-5 (Version None)
Quarter: 2009Q4

REPORT INFORMATION
  Report Type: 
  Country: None (occurrence: None)
  Receive Date: 20091116
  Receipt Date: 20091102
  Transmission Date: 20100525
  Serious: Yes (Other)
  Sender: FDA-Public Use
  Company Number: FR-MYLANLABS-2009S1018953

PATIENT
  Age: 34 Year
  Sex: Male

DRUGS (4)
  1. BISOPROLOL [Interacting]
     Route: 048
     Dates: start: 20090922, end: 20090922
  2. OLMETEC [Interacting]
     Indication: HYPERTENSION
  3. IXPRIM [Suspect]
     Indication: TENDONITIS
     Dates: start: 20090922
  4. IXPRIM [Concomitant]
     Dates: start: 20090922

REACTIONS (5)
  - BRADYCARDIA [None]
  - DRUG DISPENSING ERROR [None]
  - HYPOTENSION [None]
  - MALAISE [None]
  - MEDICATION ERROR [None]
